FAERS Safety Report 14839682 (Version 1)
Quarter: 2018Q2

REPORT INFORMATION
  Report Type: Spontaneous
  Country: FR (occurrence: FR)
  Receive Date: 20180503
  Receipt Date: 20180503
  Transmission Date: 20180711
  Serious: Yes (Hospitalization)
  Sender: FDA-Public Use
  Company Number: FR-CONCORDIA PHARMACEUTICALS INC.-GSH201804-001138

PATIENT
  Age: 19 Year
  Sex: Female

DRUGS (2)
  1. HYDROXYCHLOROQUINE [Suspect]
     Active Substance: HYDROXYCHLOROQUINE
     Indication: PRODUCT USED FOR UNKNOWN INDICATION
     Route: 048
  2. PARACETAMOL [Suspect]
     Active Substance: ACETAMINOPHEN
     Indication: PRODUCT USED FOR UNKNOWN INDICATION

REACTIONS (10)
  - Electrocardiogram QRS complex prolonged [Recovered/Resolved]
  - Electrocardiogram QT prolonged [Recovered/Resolved]
  - PCO2 increased [Unknown]
  - Hypokalaemia [Recovered/Resolved]
  - Overdose [Recovered/Resolved]
  - Blood lactic acid increased [Unknown]
  - Electrocardiogram ST segment abnormal [Recovered/Resolved]
  - Ejection fraction decreased [Recovered/Resolved]
  - Bundle branch block [Recovered/Resolved]
  - Ventricular hypokinesia [Recovered/Resolved]
